FAERS Safety Report 14222715 (Version 1)
Quarter: 2017Q4

REPORT INFORMATION
  Report Type: Spontaneous
  Country: US (occurrence: US)
  Receive Date: 20171124
  Receipt Date: 20171124
  Transmission Date: 20180321
  Serious: No
  Sender: FDA-Public Use
  Company Number: US-JNJFOC-20171003757

PATIENT
  Age: 64 Year
  Sex: Female
  Weight: 90.72 kg

DRUGS (6)
  1. SELDANE [Concomitant]
     Active Substance: TERFENADINE
     Indication: BURSITIS
     Route: 048
     Dates: start: 1998
  2. LEVSIN [Concomitant]
     Active Substance: HYOSCYAMINE SULFATE
     Indication: PAIN
     Route: 048
     Dates: start: 2012
  3. SELDANE [Concomitant]
     Active Substance: TERFENADINE
     Indication: ARTHRITIS
     Route: 048
     Dates: start: 1998
  4. GLIPIZIDE. [Concomitant]
     Active Substance: GLIPIZIDE
     Indication: BLOOD GLUCOSE ABNORMAL
     Route: 048
     Dates: start: 2012
  5. ELMIRON [Suspect]
     Active Substance: PENTOSAN POLYSULFATE SODIUM
     Indication: CYSTITIS
     Route: 048
     Dates: start: 1998
  6. TERAZOL 7 [Concomitant]
     Active Substance: TERCONAZOLE
     Indication: FUNGAL INFECTION
     Dosage: ONCE AT NIGHT
     Route: 061
     Dates: start: 201708

REACTIONS (1)
  - Cystitis [Not Recovered/Not Resolved]

NARRATIVE: CASE EVENT DATE: 201708
